FAERS Safety Report 22388975 (Version 1)
Quarter: 2023Q2

REPORT INFORMATION
  Report Type: Spontaneous
  Country: US (occurrence: US)
  Receive Date: 20230531
  Receipt Date: 20230531
  Transmission Date: 20230721
  Serious: Yes (Other)
  Sender: FDA-Public Use
  Company Number: US-002147023-NVSC2023US122375

PATIENT
  Age: 31 Year
  Sex: Female

DRUGS (4)
  1. VANCOMYCIN [Suspect]
     Active Substance: VANCOMYCIN
     Indication: Endophthalmitis
     Dosage: UNK
     Route: 042
  2. VANCOMYCIN [Suspect]
     Active Substance: VANCOMYCIN
     Dosage: LEFT INTRAVITREAL VANCOMYCIN INJECTION
     Route: 031
  3. VANCOMYCIN [Suspect]
     Active Substance: VANCOMYCIN
     Dosage: DISCHARGED ON A 6-WEEK COURSE OF IV VANCOMYCIN
     Route: 042
  4. DAPTOMYCIN [Concomitant]
     Active Substance: DAPTOMYCIN
     Indication: Endophthalmitis
     Dosage: UNK
     Route: 065

REACTIONS (2)
  - Acute kidney injury [Unknown]
  - Drug eruption [Unknown]
